FAERS Safety Report 23277011 (Version 1)
Quarter: 2023Q4

REPORT INFORMATION
  Report Type: Spontaneous
  Country: US (occurrence: None)
  Receive Date: 20231206
  Receipt Date: 20231206
  Transmission Date: 20240109
  Serious: Yes (Other)
  Sender: FDA-Public Use
  Company Number: None

PATIENT
  Sex: Female

DRUGS (2)
  1. MSM EYE DROPS 15% [Suspect]
     Active Substance: DIMETHYL SULFONE
     Indication: Dry eye
     Dosage: FREQUENCY : DAILY;?
     Route: 047
     Dates: start: 20230926, end: 20231026
  2. CASTOR OIL [Suspect]
     Active Substance: CASTOR OIL
     Indication: Dry eye
     Dosage: FREQUENCY : DAILY;?
     Route: 047

REACTIONS (4)
  - Instillation site irritation [None]
  - Eye infection [None]
  - Vision blurred [None]
  - Eye pruritus [None]

NARRATIVE: CASE EVENT DATE: 20230926
